FAERS Safety Report 5840532-2 (Version None)
Quarter: 2008Q3

REPORT INFORMATION
  Report Type: 
  Country: None (occurrence: None)
  Receive Date: 20080807
  Receipt Date: 20080807
  Transmission Date: 20090109
  Serious: Yes (Other)
  Sender: FDA-Public Use
  Company Number: None

PATIENT
  Age: 51 Year
  Sex: Female
  Weight: 95.2554 kg

DRUGS (1)
  1. ACTONEL [Suspect]
     Indication: OSTEOPOROSIS
     Dosage: 1 PILL - 150 MG 1 TIME A MONTH PO
     Route: 048
     Dates: start: 20080802, end: 20080802

REACTIONS (9)
  - ARTHRALGIA [None]
  - CHILLS [None]
  - DYSPEPSIA [None]
  - HYPOPHAGIA [None]
  - MOBILITY DECREASED [None]
  - MYALGIA [None]
  - NAUSEA [None]
  - PAIN [None]
  - WALKING AID USER [None]
